FAERS Safety Report 19896311 (Version 1)
Quarter: 2021Q3

REPORT INFORMATION
  Report Type: Spontaneous
  Country: PL (occurrence: PL)
  Receive Date: 20210929
  Receipt Date: 20210929
  Transmission Date: 20211014
  Serious: Yes (Death)
  Sender: FDA-Public Use
  Company Number: PL-PFIZER INC-202101222294

PATIENT
  Age: 32 Year
  Sex: Female

DRUGS (6)
  1. DOXORUBICIN HCL [Suspect]
     Active Substance: DOXORUBICIN HYDROCHLORIDE
     Indication: BREAST CANCER
     Dosage: UNK, QW (METRONOMIC DOSES EVERY WEEK)
     Route: 065
     Dates: start: 20210224
  2. ZOLEDRONIC ACID [Suspect]
     Active Substance: ZOLEDRONIC ACID
     Indication: BREAST CANCER
     Route: 065
     Dates: start: 20200313
  3. GOSERELIN [Concomitant]
     Active Substance: GOSERELIN
     Route: 065
     Dates: start: 20200313
  4. KISQALI [Suspect]
     Active Substance: RIBOCICLIB
     Indication: BREAST CANCER
     Dosage: 600 MG, QD (FOR 21 DAYS FOLLOWED BY A 7?DAY)
     Route: 065
     Dates: start: 20200327
  5. KISQALI [Suspect]
     Active Substance: RIBOCICLIB
     Dosage: 200 MG
     Route: 065
     Dates: end: 20210216
  6. LETROZOLE. [Concomitant]
     Active Substance: LETROZOLE
     Dosage: 2.5 MG, QD
     Route: 065

REACTIONS (2)
  - Neoplasm progression [Fatal]
  - Eye disorder [Fatal]

NARRATIVE: CASE EVENT DATE: 20210216
